FAERS Safety Report 8347190-6 (Version None)
Quarter: 2012Q2

REPORT INFORMATION
  Report Type: 
  Country: None (occurrence: None)
  Receive Date: 20120509
  Receipt Date: 20120427
  Transmission Date: 20120825
  Serious: Yes (Other)
  Sender: FDA-Public Use
  Company Number: US-SANOFI-AVENTIS-2012SA030198

PATIENT
  Age: 55 Year
  Sex: Female
  Weight: 112 kg

DRUGS (7)
  1. ASPIRIN [Concomitant]
  2. CRESTOR [Concomitant]
  3. ALL OTHER THERAPEUTIC PRODUCTS [Concomitant]
  4. DIOVAN HCT [Concomitant]
  5. AMLODIPINE [Concomitant]
  6. PLAVIX [Suspect]
     Indication: STENT PLACEMENT
     Route: 048
     Dates: start: 20120201
  7. METOPROLOL TARTRATE [Concomitant]

REACTIONS (2)
  - CHEST PAIN [None]
  - VASCULAR OCCLUSION [None]
